FAERS Safety Report 12696523 (Version 1)
Quarter: 2016Q3

REPORT INFORMATION
  Report Type: Spontaneous
  Country: US (occurrence: US)
  Receive Date: 20160830
  Receipt Date: 20160830
  Transmission Date: 20161109
  Serious: No
  Sender: FDA-Public Use
  Company Number: US-GLENMARK PHARMACEUTICALS INC, USA.-2016GMK022446

PATIENT
  Age: 46 Year
  Sex: Female

DRUGS (8)
  1. MELOXICAM. [Suspect]
     Active Substance: MELOXICAM
     Indication: COMPLEX REGIONAL PAIN SYNDROME
     Dosage: 15 MG, QD
  2. CLONIDINE. [Concomitant]
     Active Substance: CLONIDINE
     Indication: PREMEDICATION
     Dosage: 0.1 MG, UNK
     Route: 048
  3. ACETAMINOPHEN W/HYDROCODONE [Concomitant]
     Active Substance: ACETAMINOPHEN\HYDROCODONE
     Indication: COMPLEX REGIONAL PAIN SYNDROME
     Dosage: 325/10 UNK, QID
  4. NEURONTIN [Concomitant]
     Active Substance: GABAPENTIN
     Indication: COMPLEX REGIONAL PAIN SYNDROME
     Dosage: 300 MG, TID
  5. TRAMADOL. [Concomitant]
     Active Substance: TRAMADOL
     Indication: COMPLEX REGIONAL PAIN SYNDROME
     Dosage: 50 MG, TID
  6. MIDAZOLAM [Concomitant]
     Active Substance: MIDAZOLAM\MIDAZOLAM HYDROCHLORIDE
     Indication: PREMEDICATION
     Dosage: 2 MG, UNK
     Route: 042
  7. DEXAMETHASONE. [Concomitant]
     Active Substance: DEXAMETHASONE
     Indication: PREMEDICATION
     Dosage: 8 MG, UNK
     Route: 042
  8. ZOFRAN [Concomitant]
     Active Substance: ONDANSETRON HYDROCHLORIDE
     Indication: PREMEDICATION
     Dosage: 4 MG, UNK
     Route: 042

REACTIONS (2)
  - Off label use [Unknown]
  - Therapeutic response unexpected [Unknown]
